FAERS Safety Report 8999347 (Version 1)
Quarter: 2013Q1

REPORT INFORMATION
  Report Type: Spontaneous
  Country: JP (occurrence: JP)
  Receive Date: 20130103
  Receipt Date: 20130103
  Transmission Date: 20140127
  Serious: Yes (Other)
  Sender: FDA-Public Use
  Company Number: JP-PFIZER INC-2013000255

PATIENT
  Age: 71 Year
  Sex: Male

DRUGS (5)
  1. AMIODARONE HCL [Suspect]
     Indication: SICK SINUS SYNDROME
     Dosage: 100 MG DAILY
     Route: 065
  2. BISOPROLOL [Concomitant]
     Indication: ATRIAL FIBRILLATION
     Dosage: UNK
  3. ALLOPURINOL [Concomitant]
     Dosage: UNK
  4. ROSUVASTATIN [Concomitant]
     Dosage: UNK
  5. OLMESARTAN [Concomitant]
     Dosage: UNK

REACTIONS (1)
  - Device pacing issue [Recovered/Resolved]
